FAERS Safety Report 9215378 (Version 1)
Quarter: 2013Q2

REPORT INFORMATION
  Report Type: Spontaneous
  Country: AU (occurrence: AU)
  Receive Date: 20130405
  Receipt Date: 20130405
  Transmission Date: 20140414
  Serious: Yes (Hospitalization)
  Sender: FDA-Public Use
  Company Number: AU-B.I. PHARMACEUTICALS,INC./RIDGEFIELD-2013-AU-00389AU

PATIENT
  Age: 76 Year
  Sex: Male

DRUGS (7)
  1. PRADAXA [Suspect]
     Indication: ATRIAL FIBRILLATION
  2. ESOMEPRAZOLE [Concomitant]
     Dosage: 40 MG
     Route: 048
  3. LISINOPRIL [Concomitant]
     Dosage: 5 MG
     Route: 048
  4. GLICLAZIDE [Concomitant]
     Dosage: 30 MG
     Route: 048
  5. METFORMIN [Concomitant]
     Dosage: 500 MG
     Route: 048
  6. FERROUS FUMARATE/FOLIC ACID [Concomitant]
     Dosage: 310MG-350MICROG
     Route: 048
  7. HORMONAL RX [Concomitant]
     Indication: PROSTATE CANCER

REACTIONS (3)
  - Diverticulitis intestinal haemorrhagic [Not Recovered/Not Resolved]
  - Proctitis [Unknown]
  - Rectal haemorrhage [Not Recovered/Not Resolved]
